FAERS Safety Report 23528097 (Version 1)
Quarter: 2024Q1

REPORT INFORMATION
  Report Type: Spontaneous
  Country: US (occurrence: US)
  Receive Date: 20240215
  Receipt Date: 20240215
  Transmission Date: 20240409
  Serious: No
  Sender: FDA-Public Use
  Company Number: US-BRISTOL-MYERS SQUIBB COMPANY-2024-024988

PATIENT
  Age: 70 Year
  Sex: Male

DRUGS (1)
  1. ONUREG [Suspect]
     Active Substance: AZACITIDINE
     Indication: Chronic myeloid leukaemia
     Route: 048

REACTIONS (3)
  - Illness [Unknown]
  - Vomiting [Unknown]
  - Food poisoning [Unknown]
